FAERS Safety Report 8396197-1 (Version None)
Quarter: 2012Q2

REPORT INFORMATION
  Report Type: 
  Country: None (occurrence: None)
  Receive Date: 20120530
  Receipt Date: 20120522
  Transmission Date: 20120825
  Serious: Yes (Life-Threatening, Hospitalization)
  Sender: FDA-Public Use
  Company Number: FR-GLAXOSMITHKLINE-B0802819A

PATIENT
  Sex: Female

DRUGS (4)
  1. POLARAMINE [Suspect]
     Indication: PREMEDICATION
     Dosage: 5MG SINGLE DOSE
     Route: 042
     Dates: start: 20120322, end: 20120322
  2. KYTRIL [Suspect]
     Indication: PREMEDICATION
     Dosage: 3MG SINGLE DOSE
     Route: 042
     Dates: start: 20120322, end: 20120322
  3. SOLU-MEDROL [Suspect]
     Indication: PREMEDICATION
     Dosage: 120MG SINGLE DOSE
     Route: 042
     Dates: start: 20120322, end: 20120322
  4. ZANTAC [Suspect]
     Indication: PREMEDICATION
     Dosage: 50MG SINGLE DOSE
     Route: 042
     Dates: start: 20120322, end: 20120322

REACTIONS (8)
  - HYPOTENSION [None]
  - ANAPHYLACTIC SHOCK [None]
  - BRONCHOSPASM [None]
  - DIARRHOEA [None]
  - CYANOSIS [None]
  - ABDOMINAL PAIN [None]
  - HYPERHIDROSIS [None]
  - RASH [None]
